FAERS Safety Report 4871794-6 (Version None)
Quarter: 2006Q1

REPORT INFORMATION
  Report Type: 
  Country: None (occurrence: None)
  Receive Date: 20060104
  Receipt Date: 20050225
  Transmission Date: 20060701
  Serious: Yes (Death, Life-Threatening)
  Sender: FDA-Public Use
  Company Number: JP-GLAXOSMITHKLINE-B0373040A

PATIENT
  Age: 64 Year
  Sex: Female
  Weight: 38 kg

DRUGS (1)
  1. ZEFIX [Suspect]
     Indication: HEPATITIS B
     Dosage: 100MG PER DAY
     Route: 048
     Dates: start: 20050104, end: 20050222

REACTIONS (17)
  - ALANINE AMINOTRANSFERASE INCREASED [None]
  - ALPHA 1 FOETOPROTEIN INCREASED [None]
  - ASPARTATE AMINOTRANSFERASE INCREASED [None]
  - BLOOD ALBUMIN DECREASED [None]
  - BLOOD ALKALINE PHOSPHATASE INCREASED [None]
  - BLOOD BILIRUBIN INCREASED [None]
  - BLOOD LACTATE DEHYDROGENASE INCREASED [None]
  - CARDIO-RESPIRATORY ARREST [None]
  - COMA HEPATIC [None]
  - GAMMA-GLUTAMYLTRANSFERASE INCREASED [None]
  - GASTROINTESTINAL HAEMORRHAGE [None]
  - HAEMATEMESIS [None]
  - HEPATIC FAILURE [None]
  - HYPERAMMONAEMIA [None]
  - LIVER DISORDER [None]
  - PORTAL VEIN PRESSURE INCREASED [None]
  - PORTAL VEIN THROMBOSIS [None]
